FAERS Safety Report 23440481 (Version 1)
Quarter: 2024Q1

REPORT INFORMATION
  Report Type: Other
  Country: IT (occurrence: IT)
  Receive Date: 20240125
  Receipt Date: 20240125
  Transmission Date: 20240410
  Serious: Yes (Other)
  Sender: FDA-Public Use
  Company Number: IT-SAMSUNG BIOEPIS-SB-2023-34819

PATIENT

DRUGS (1)
  1. ADALIMUMAB [Suspect]
     Active Substance: ADALIMUMAB\ISOPROPYL ALCOHOL
     Indication: Psoriasis
     Dosage: UNK
     Route: 065

REACTIONS (5)
  - Glomerulonephritis [Recovered/Resolved]
  - Renal failure [Recovered/Resolved]
  - Henoch-Schonlein purpura [Recovered/Resolved]
  - Device related infection [Unknown]
  - Psoriasis [Unknown]
